FAERS Safety Report 22269981 (Version 1)
Quarter: 2023Q2

REPORT INFORMATION
  Report Type: Spontaneous
  Country: AU (occurrence: AU)
  Receive Date: 20230501
  Receipt Date: 20230501
  Transmission Date: 20230721
  Serious: Yes (Other)
  Sender: FDA-Public Use
  Company Number: AU-ANIPHARMA-2023-AU-000113

PATIENT
  Sex: Female

DRUGS (10)
  1. ANASTROZOLE [Suspect]
     Active Substance: ANASTROZOLE
     Indication: Product used for unknown indication
     Route: 065
  2. PACLITAXEL [Suspect]
     Active Substance: PACLITAXEL
     Route: 065
  3. TAMOXIFEN CITRATE [Suspect]
     Active Substance: TAMOXIFEN CITRATE
     Route: 065
  4. CARBOPLATIN [Suspect]
     Active Substance: CARBOPLATIN
     Route: 065
  5. UNSPECIFIED INGREDIENT [Suspect]
     Active Substance: UNSPECIFIED INGREDIENT
     Route: 065
  6. ERIBULIN [Suspect]
     Active Substance: ERIBULIN
     Route: 065
  7. EVEROLIMUS [Suspect]
     Active Substance: EVEROLIMUS
     Route: 065
  8. EXEMESTANE [Suspect]
     Active Substance: EXEMESTANE
     Route: 065
  9. GEMCITABINE HYDROCHLORIDE [Suspect]
     Active Substance: GEMCITABINE HYDROCHLORIDE
     Route: 065
  10. LETROZOLE [Suspect]
     Active Substance: LETROZOLE
     Route: 065

REACTIONS (4)
  - Breast cancer metastatic [Unknown]
  - Hormone receptor positive breast cancer [Unknown]
  - Malignant neoplasm progression [Unknown]
  - PIK3CA-activated mutation [Unknown]
